FAERS Safety Report 18969060 (Version 1)
Quarter: 2021Q1

REPORT INFORMATION
  Report Type: Spontaneous
  Country: US (occurrence: US)
  Receive Date: 20210304
  Receipt Date: 20210304
  Transmission Date: 20210420
  Serious: Yes (Other)
  Sender: FDA-Public Use
  Company Number: None

PATIENT
  Age: 77 Year
  Sex: Male

DRUGS (1)
  1. CABOMETYX [Suspect]
     Active Substance: CABOZANTINIB S-MALATE
     Route: 048

REACTIONS (4)
  - Food allergy [None]
  - Oropharyngeal pain [None]
  - Dyspnoea [None]
  - Oral pain [None]

NARRATIVE: CASE EVENT DATE: 20210217
